FAERS Safety Report 23888808 (Version 1)
Quarter: 2024Q2

REPORT INFORMATION
  Report Type: Spontaneous
  Country: US (occurrence: US)
  Receive Date: 20240523
  Receipt Date: 20240523
  Transmission Date: 20240716
  Serious: Yes (Hospitalization, Other)
  Sender: FDA-Public Use
  Company Number: US-JNJFOC-20240540896

PATIENT
  Age: 62 Year
  Sex: Male

DRUGS (6)
  1. STELARA [Suspect]
     Active Substance: USTEKINUMAB
     Indication: Colitis ulcerative
     Route: 058
  2. STELARA [Suspect]
     Active Substance: USTEKINUMAB
     Indication: Cholangitis sclerosing
  3. STELARA [Suspect]
     Active Substance: USTEKINUMAB
     Indication: Hepatic cirrhosis
  4. AZATHIOPRINE [Suspect]
     Active Substance: AZATHIOPRINE
     Indication: Colitis ulcerative
     Route: 065
  5. AZATHIOPRINE [Suspect]
     Active Substance: AZATHIOPRINE
     Indication: Cholangitis sclerosing
  6. AZATHIOPRINE [Suspect]
     Active Substance: AZATHIOPRINE
     Indication: Hepatic cirrhosis

REACTIONS (4)
  - Peritonitis bacterial [Recovering/Resolving]
  - Immunodeficiency [Recovering/Resolving]
  - Meningitis listeria [Recovering/Resolving]
  - Bacteraemia [Recovering/Resolving]
